FAERS Safety Report 7351860-6 (Version None)
Quarter: 2011Q1

REPORT INFORMATION
  Report Type: 
  Country: None (occurrence: None)
  Receive Date: 20110315
  Receipt Date: 20110307
  Transmission Date: 20110831
  Serious: Yes (Other)
  Sender: FDA-Public Use
  Company Number: DE-AMGEN-DEUSP2010007548

PATIENT
  Age: 69 Year
  Sex: Female
  Weight: 77.5 kg

DRUGS (5)
  1. EPOETIN ZETA [Concomitant]
     Indication: MYELODYSPLASTIC SYNDROME
  2. MOBLOC [Concomitant]
     Indication: HYPERTENSION
     Dosage: UNK UNK, QD
     Route: 048
  3. EPOETIN ZETA [Concomitant]
     Indication: ANAEMIA
     Dosage: 10 A?G/KG, QWK
     Route: 058
     Dates: start: 20091209, end: 20101221
  4. NPLATE [Suspect]
     Indication: IDIOPATHIC THROMBOCYTOPENIC PURPURA
     Dosage: 775 A?G, UNK
     Route: 058
     Dates: start: 20090801, end: 20101020
  5. DOXAZOSIN [Concomitant]
     Indication: HYPERTENSION
     Dosage: 4 MG, QD
     Route: 048

REACTIONS (3)
  - SPLENOMEGALY [None]
  - BONE MARROW RETICULIN FIBROSIS [None]
  - BIOPSY BONE MARROW ABNORMAL [None]
